FAERS Safety Report 5460250-2 (Version None)
Quarter: 2007Q3

REPORT INFORMATION
  Report Type: 
  Country: None (occurrence: None)
  Receive Date: 20070919
  Receipt Date: 20070605
  Transmission Date: 20080115
  Serious: No
  Sender: FDA-Public Use
  Company Number: US-ASTRAZENECA-2007UW13523

PATIENT
  Age: 49 Year
  Sex: Female
  Weight: 56.7 kg

DRUGS (2)
  1. SEROQUEL [Suspect]
     Indication: BIPOLAR I DISORDER
     Route: 048
     Dates: start: 20070605
  2. LAMICTAL [Concomitant]

REACTIONS (4)
  - DISORIENTATION [None]
  - FATIGUE [None]
  - FEELING ABNORMAL [None]
  - SOMNOLENCE [None]
